FAERS Safety Report 18032508 (Version 1)
Quarter: 2020Q3

REPORT INFORMATION
  Report Type: Other
  Country: TR (occurrence: TR)
  Receive Date: 20200716
  Receipt Date: 20200716
  Transmission Date: 20201103
  Serious: No
  Sender: FDA-Public Use
  Company Number: TR-ROCHE-2642232

PATIENT
  Age: 34 Year
  Sex: Female
  Weight: 61 kg

DRUGS (17)
  1. CIPRALEX [Concomitant]
     Active Substance: ESCITALOPRAM OXALATE
     Indication: DEPRESSION
     Route: 048
     Dates: start: 20140313, end: 201404
  2. PARACETAMOL [Concomitant]
     Active Substance: ACETAMINOPHEN
     Route: 048
     Dates: start: 20190709, end: 20190709
  3. AVIL [Concomitant]
     Active Substance: PHENIRAMINE
     Route: 042
     Dates: start: 20190627
  4. DRAMAMINE [Concomitant]
     Active Substance: DIMENHYDRINATE
     Route: 048
     Dates: start: 20190627, end: 20190627
  5. OCRELIZUMAB. [Suspect]
     Active Substance: OCRELIZUMAB
     Indication: PRIMARY PROGRESSIVE MULTIPLE SCLEROSIS
     Dosage: SUBSEQUENT THERAPY RECEIVED ON: 27/JUN/2019, 09/JUL/2019 AND 08/JAN/2020
     Route: 042
  6. MODIWAKE [Concomitant]
     Route: 048
  7. AUBAGIO [Concomitant]
     Active Substance: TERIFLUNOMIDE
     Route: 048
     Dates: start: 20160202, end: 20180801
  8. AVIL [Concomitant]
     Active Substance: PHENIRAMINE
     Route: 042
     Dates: start: 20190709
  9. PARACETAMOL [Concomitant]
     Active Substance: ACETAMINOPHEN
     Route: 048
     Dates: start: 20190627, end: 20190627
  10. PARACETAMOL [Concomitant]
     Active Substance: ACETAMINOPHEN
     Route: 048
     Dates: start: 20200108, end: 20200108
  11. CIPRALEX [Concomitant]
     Active Substance: ESCITALOPRAM OXALATE
     Route: 048
     Dates: start: 20151015, end: 20151217
  12. MODIODAL [Concomitant]
     Active Substance: MODAFINIL
     Route: 048
     Dates: start: 20151015, end: 20151117
  13. DRAMAMINE [Concomitant]
     Active Substance: DIMENHYDRINATE
     Route: 048
     Dates: start: 20190709
  14. AVIL [Concomitant]
     Active Substance: PHENIRAMINE
     Route: 042
     Dates: start: 20200108
  15. DRAMAMINE [Concomitant]
     Active Substance: DIMENHYDRINATE
     Route: 048
     Dates: start: 20200108
  16. DRAMAMINE [Concomitant]
     Active Substance: DIMENHYDRINATE
     Route: 048
     Dates: start: 20200204, end: 20200204
  17. CIPRALEX [Concomitant]
     Active Substance: ESCITALOPRAM OXALATE
     Route: 048
     Dates: start: 20150320, end: 20151015

REACTIONS (1)
  - Influenza [Recovered/Resolved]

NARRATIVE: CASE EVENT DATE: 20191021
